FAERS Safety Report 12968116 (Version 1)
Quarter: 2016Q4

REPORT INFORMATION
  Report Type: Report from Study
  Country: US (occurrence: US)
  Receive Date: 20161123
  Receipt Date: 20161123
  Transmission Date: 20170207
  Serious: Yes (Other)
  Sender: FDA-Public Use
  Company Number: US-MALLINCKRODT-T201604962

PATIENT
  Sex: Male

DRUGS (1)
  1. REPOSITORY CORTICOTROPIN INJECTION [Suspect]
     Active Substance: CORTICOTROPIN
     Indication: RHEUMATOID ARTHRITIS
     Dosage: 80U/1ML TWICE WEEKLY, TUESDAY AND FRIDAY
     Route: 058
     Dates: start: 20150902

REACTIONS (12)
  - Skin atrophy [Unknown]
  - Malaise [Not Recovered/Not Resolved]
  - Insomnia [Unknown]
  - Ecchymosis [Unknown]
  - Muscular weakness [Unknown]
  - Decreased appetite [Unknown]
  - Dizziness [Unknown]
  - Oedema peripheral [Unknown]
  - Drug effect decreased [Unknown]
  - Fluid retention [Unknown]
  - Skin cancer [Unknown]
  - Pain [Not Recovered/Not Resolved]
